FAERS Safety Report 6933474-2 (Version None)
Quarter: 2010Q3

REPORT INFORMATION
  Report Type: 
  Country: None (occurrence: None)
  Receive Date: 20100820
  Receipt Date: 20100809
  Transmission Date: 20110219
  Serious: Yes (Other)
  Sender: FDA-Public Use
  Company Number: US-PFIZER INC-2010100685

PATIENT
  Sex: Female
  Weight: 46.712 kg

DRUGS (4)
  1. LYRICA [Suspect]
     Indication: ANXIETY
     Dosage: 150 MG, 3X/DAY
     Route: 048
     Dates: start: 20100101
  2. ZOLOFT [Concomitant]
     Dosage: UNK
  3. KLONOPIN [Concomitant]
     Dosage: UNK
  4. GEODON [Concomitant]
     Dosage: UNK

REACTIONS (2)
  - ABDOMINAL DISTENSION [None]
  - WEIGHT INCREASED [None]
